FAERS Safety Report 7542170-2 (Version None)
Quarter: 2011Q2

REPORT INFORMATION
  Report Type: 
  Country: None (occurrence: None)
  Receive Date: 20110524
  Receipt Date: 20110223
  Transmission Date: 20111010
  Serious: No
  Sender: FDA-Public Use
  Company Number: 028196

PATIENT
  Sex: Female

DRUGS (1)
  1. CIMZIA [Suspect]
     Indication: CROHN'S DISEASE
     Dosage: (SUBCUTANEOUS)
     Route: 058
     Dates: start: 20110201

REACTIONS (6)
  - URINARY TRACT INFECTION [None]
  - NASAL CONGESTION [None]
  - POOR QUALITY SLEEP [None]
  - DYSPHONIA [None]
  - FEELING ABNORMAL [None]
  - INFLUENZA [None]
